FAERS Safety Report 9388057 (Version 2)
Quarter: 2013Q3

REPORT INFORMATION
  Report Type: Spontaneous
  Country: US (occurrence: None)
  Receive Date: 20130703
  Receipt Date: 20130730
  Transmission Date: 20140515
  Serious: Yes (Other)
  Sender: FDA-Public Use
  Company Number: AUR-APL-2013-05595

PATIENT
  Age: 89 Year
  Sex: Female

DRUGS (8)
  1. FOSINOPRIL [Suspect]
     Indication: HYPERTENSION
     Route: 048
     Dates: start: 20060726
  2. DOXAZOSIN [Suspect]
     Indication: HYPERTENSION
     Dosage: 8 MG, 1 D
     Route: 048
     Dates: start: 20080616
  3. SPIRONOLACTONE [Suspect]
     Indication: HYPERTENSION
     Dosage: 50 MG (25 MG, 2 IN 1 D), ORAL
     Route: 048
     Dates: start: 20081015
  4. HYDROCHLOROTHIAZIDE W/OLMESARTAN [Suspect]
     Indication: HYPERTENSION
     Dosage: 20 MG/40 MG (1 D), ORAL
     Route: 048
     Dates: start: 20090204
  5. ATORVASTATIN (ATORVASTATIN) [Concomitant]
  6. AMLODIPINE (AMLODIPINE) [Suspect]
     Indication: HYPERTENSION
     Dosage: 10 MG, 1 D
     Route: 048
     Dates: start: 20060830
  7. GLIPIZIDE (GLIPIZIDE) [Concomitant]
  8. METOPROLOL (METOPROLOL) [Suspect]
     Indication: HYPERTENSION
     Dosage: (150 MG, 1 D)
     Route: 048
     Dates: start: 20080227

REACTIONS (7)
  - Orthostatic hypotension [None]
  - Hyperkalaemia [None]
  - Drug prescribing error [None]
  - Renal failure [None]
  - Treatment noncompliance [None]
  - Polymedication [None]
  - Dizziness postural [None]
